FAERS Safety Report 5665650-3 (Version None)
Quarter: 2008Q1

REPORT INFORMATION
  Report Type: 
  Country: None (occurrence: None)
  Receive Date: 20080314
  Receipt Date: 20060331
  Transmission Date: 20080703
  Serious: No
  Sender: FDA-Public Use
  Company Number: US-ABBOTT-07P-163-0429193-00

PATIENT

DRUGS (1)
  1. HUMIRA [Suspect]
     Indication: RHEUMATOID ARTHRITIS

REACTIONS (7)
  - BLOOD CHOLESTEROL INCREASED [None]
  - BLOOD TRIGLYCERIDES INCREASED [None]
  - FOLATE DEFICIENCY [None]
  - HAEMATOCRIT DECREASED [None]
  - OSTEOARTHRITIS [None]
  - OSTEOPOROSIS [None]
  - RED BLOOD CELL COUNT DECREASED [None]
